FAERS Safety Report 21949828 (Version 10)
Quarter: 2023Q2

REPORT INFORMATION
  Report Type: Report from Study
  Country: CN (occurrence: CN)
  Receive Date: 20230203
  Receipt Date: 20230615
  Transmission Date: 20230721
  Serious: Yes (Hospitalization, Other)
  Sender: FDA-Public Use
  Company Number: CN-TAKEDA-2022TUS088606

PATIENT
  Age: 79 Year
  Sex: Female
  Weight: 44 kg

DRUGS (18)
  1. IXAZOMIB [Suspect]
     Active Substance: IXAZOMIB
     Indication: Plasma cell myeloma
     Dosage: 3 MILLIGRAM, 1/WEEK
     Route: 048
     Dates: start: 20211229, end: 20220330
  2. DEXAMETHASONE [Suspect]
     Active Substance: DEXAMETHASONE
     Indication: Plasma cell myeloma
     Dosage: 20 MILLIGRAM, QD
     Route: 048
     Dates: start: 20211229
  3. CYCLOPHOSPHAMIDE [Suspect]
     Active Substance: CYCLOPHOSPHAMIDE
     Indication: Plasma cell myeloma
     Dosage: 300 MILLIGRAM, QD
     Route: 048
     Dates: start: 20211229
  4. METHYLCOBALAMIN [Concomitant]
     Active Substance: METHYLCOBALAMIN
     Indication: Anaemia
     Dosage: 0.5 MILLIGRAM, TID
     Route: 048
     Dates: start: 20211207
  5. BUDESONIDE [Concomitant]
     Active Substance: BUDESONIDE
     Indication: Nasopharyngitis
     Dosage: 64 MICROGRAM, BID
     Route: 055
     Dates: start: 20211207
  6. ESOMEPRAZOLE MAGNESIUM [Concomitant]
     Active Substance: ESOMEPRAZOLE MAGNESIUM
     Indication: Gastric ulcer
     Dosage: 20 MILLIGRAM, QD
     Route: 048
     Dates: start: 20211207
  7. ESOMEPRAZOLE MAGNESIUM [Concomitant]
     Active Substance: ESOMEPRAZOLE MAGNESIUM
     Indication: Gastritis
  8. ACYCLOVIR [Concomitant]
     Active Substance: ACYCLOVIR
     Indication: Herpes zoster
     Dosage: 0.2 GRAM, TID
     Route: 048
     Dates: start: 20211228
  9. FLUCONAZOLE [Concomitant]
     Active Substance: FLUCONAZOLE
     Indication: Pneumonia
     Dosage: 150 MILLIGRAM, QD
     Route: 048
     Dates: start: 20210815
  10. GABAPENTIN [Concomitant]
     Active Substance: GABAPENTIN
     Indication: Neuralgia
     Dosage: 0.3 MILLIGRAM, TID
     Route: 048
     Dates: start: 20211207
  11. URSODIOL [Concomitant]
     Active Substance: URSODIOL
     Indication: Gastric ulcer
     Dosage: 250 MILLIGRAM, QD
     Route: 048
     Dates: start: 20210121
  12. URSODIOL [Concomitant]
     Active Substance: URSODIOL
     Indication: Gastritis
  13. OPRELVEKIN [Concomitant]
     Active Substance: OPRELVEKIN
     Indication: Plasma cell myeloma
     Dosage: 1.5 MILLIGRAM, QD
     Route: 058
     Dates: start: 20220116, end: 20220119
  14. CEFTRIAXONE SODIUM [Concomitant]
     Active Substance: CEFTRIAXONE SODIUM
     Indication: Nasopharyngitis
     Dosage: 500 MILLILITER, QD
     Route: 042
     Dates: start: 20220116, end: 20220119
  15. VITAMIN C [Concomitant]
     Active Substance: ASCORBIC ACID
     Indication: Gastroenteritis
     Dosage: 3 GRAM, QD
     Route: 042
     Dates: start: 20220116, end: 20220119
  16. Compound amino acid injection (17aa) [Concomitant]
     Indication: Gastroenteritis
     Dosage: 12.5 GRAM, QD
     Route: 042
     Dates: start: 20220116, end: 20220119
  17. VITAMIN B6 [Concomitant]
     Active Substance: PYRIDOXINE HYDROCHLORIDE
     Indication: Gastroenteritis
     Dosage: 200 MILLIGRAM, QD
     Route: 042
     Dates: start: 20220116, end: 20220119
  18. POTASSIUM CHLORIDE [Concomitant]
     Active Substance: POTASSIUM CHLORIDE
     Indication: Prophylaxis
     Dosage: 1.5 GRAM, QD
     Route: 042
     Dates: start: 20220116, end: 20220119

REACTIONS (6)
  - Gastroenteritis [Recovering/Resolving]
  - Hypokalaemia [Recovered/Resolved]
  - Blood glucose increased [Recovered/Resolved]
  - Diarrhoea [Recovering/Resolving]
  - Anaemia [Unknown]
  - Off label use [Unknown]

NARRATIVE: CASE EVENT DATE: 20211230
